FAERS Safety Report 13259226 (Version 1)
Quarter: 2017Q1

REPORT INFORMATION
  Report Type: Spontaneous
  Country: US (occurrence: US)
  Receive Date: 20170221
  Receipt Date: 20170221
  Transmission Date: 20170428
  Serious: Yes (Hospitalization)
  Sender: FDA-Public Use
  Company Number: None

PATIENT
  Sex: Female

DRUGS (18)
  1. EXJADE [Suspect]
     Active Substance: DEFERASIROX
     Indication: HAEMOCHROMATOSIS
     Route: 048
     Dates: start: 20160412
  2. CARVEDILOL. [Concomitant]
     Active Substance: CARVEDILOL
  3. DIGOX [Concomitant]
     Active Substance: DIGOXIN
  4. VIRTUSSIN [Concomitant]
  5. ALPRAZOLAM. [Concomitant]
     Active Substance: ALPRAZOLAM
  6. MONTELUKAST [Concomitant]
     Active Substance: MONTELUKAST SODIUM
  7. OMEPRAZOLE. [Concomitant]
     Active Substance: OMEPRAZOLE
  8. BREO ELLIPTA [Concomitant]
     Active Substance: FLUTICASONE FUROATE\VILANTEROL TRIFENATATE
  9. METHLPRED [Concomitant]
  10. TOPIRAMATE. [Concomitant]
     Active Substance: TOPIRAMATE
  11. BUSPIRONE [Concomitant]
     Active Substance: BUSPIRONE HYDROCHLORIDE
  12. IPRATRO/ALBUTEROL [Concomitant]
  13. HYDROCOD/APAP [Concomitant]
  14. COMBIVENT [Concomitant]
     Active Substance: ALBUTEROL SULFATE\IPRATROPIUM BROMIDE
  15. AZITHROMYCIN ANHYDROUS. [Concomitant]
     Active Substance: AZITHROMYCIN ANHYDROUS
  16. IBUPROFEN. [Concomitant]
     Active Substance: IBUPROFEN
  17. FUROSEMIDE. [Concomitant]
     Active Substance: FUROSEMIDE
  18. KCL [Concomitant]
     Active Substance: POTASSIUM CHLORIDE

REACTIONS (1)
  - Drug dose omission [None]

NARRATIVE: CASE EVENT DATE: 2017
